FAERS Safety Report 26184099 (Version 1)
Quarter: 2025Q4

REPORT INFORMATION
  Report Type: Spontaneous
  Country: US (occurrence: US)
  Receive Date: 20251222
  Receipt Date: 20251222
  Transmission Date: 20260118
  Serious: Yes (Other)
  Sender: TAKEDA
  Company Number: US-TAKEDA-2025TUS113549

PATIENT
  Age: 72 Year
  Sex: Male

DRUGS (4)
  1. GATTEX [Suspect]
     Active Substance: TEDUGLUTIDE\WATER
     Indication: Sjogren^s syndrome
     Dosage: 0.25 MG/KG, QD
  2. GATTEX [Suspect]
     Active Substance: TEDUGLUTIDE\WATER
  3. GATTEX [Suspect]
     Active Substance: TEDUGLUTIDE\WATER
  4. GATTEX [Suspect]
     Active Substance: TEDUGLUTIDE\WATER

REACTIONS (4)
  - End stage renal disease [Unknown]
  - Off label use [Unknown]
  - Diarrhoea [Unknown]
  - Decreased appetite [Unknown]
